FAERS Safety Report 6138604-0 (Version None)
Quarter: 2009Q1

REPORT INFORMATION
  Report Type: 
  Country: None (occurrence: None)
  Receive Date: 20090326
  Receipt Date: 20090218
  Transmission Date: 20090719
  Serious: No
  Sender: FDA-Public Use
  Company Number: SPL200800019

PATIENT
  Age: 31 Year
  Sex: Female

DRUGS (1)
  1. LUBIPROSTONE [Suspect]
     Indication: CONSTIPATION
     Dosage: 48 ?G  ORAL
     Route: 048

REACTIONS (1)
  - PREGNANCY ON CONTRACEPTIVE [None]
